FAERS Safety Report 6257546-3 (Version None)
Quarter: 2009Q3

REPORT INFORMATION
  Report Type: 
  Country: None (occurrence: None)
  Receive Date: 20090702
  Receipt Date: 20090624
  Transmission Date: 20100115
  Serious: Yes (Hospitalization, Other)
  Sender: FDA-Public Use
  Company Number: TRP_02418_2008

PATIENT
  Sex: Male
  Weight: 63.6 kg

DRUGS (2)
  1. ADVAFERON             (AFLACON-1) (NOT SPECIFIED) [Suspect]
     Indication: HEPATIC CIRRHOSIS
     Dosage: (9 MILLION IU 3X/WEEK SUBCUTANEOUS)
     Route: 058
     Dates: start: 20061002, end: 20070502
  2. ADVAFERON             (AFLACON-1) (NOT SPECIFIED) [Suspect]
     Indication: HEPATITIS C
     Dosage: (9 MILLION IU 3X/WEEK SUBCUTANEOUS)
     Route: 058
     Dates: start: 20061002, end: 20070502

REACTIONS (10)
  - C-REACTIVE PROTEIN DECREASED [None]
  - CELLULITIS [None]
  - CULTURE WOUND POSITIVE [None]
  - FEELING ABNORMAL [None]
  - FLAVOBACTERIUM INFECTION [None]
  - IMPAIRED HEALING [None]
  - INJECTION SITE NECROSIS [None]
  - INJECTION SITE ULCER [None]
  - PAIN IN EXTREMITY [None]
  - RASH [None]
